FAERS Safety Report 6165102-0 (Version None)
Quarter: 2009Q2

REPORT INFORMATION
  Report Type: 
  Country: None (occurrence: None)
  Receive Date: 20090421
  Receipt Date: 20090421
  Transmission Date: 20091009
  Serious: Yes (Other)
  Sender: FDA-Public Use
  Company Number: None

PATIENT
  Sex: Female
  Weight: 51.7101 kg

DRUGS (1)
  1. ELMIRON [Suspect]
     Indication: CYSTITIS INTERSTITIAL
     Dosage: 1 CAPSULE 2 TIMES A DAY
     Dates: start: 20090316, end: 20090329

REACTIONS (2)
  - CAPILLARY DISORDER [None]
  - GINGIVAL BLEEDING [None]
